FAERS Safety Report 7125951-9 (Version None)
Quarter: 2010Q4

REPORT INFORMATION
  Report Type: 
  Country: None (occurrence: None)
  Receive Date: 20101129
  Receipt Date: 20101118
  Transmission Date: 20110411
  Serious: Yes (Hospitalization, Other)
  Sender: FDA-Public Use
  Company Number: US-JNJFOC-20101107171

PATIENT
  Sex: Female
  Weight: 89.81 kg

DRUGS (7)
  1. FENTANYL-100 [Suspect]
     Indication: SPINAL COLUMN STENOSIS
     Dosage: NDC: 0781-7244-55
     Route: 062
  2. FENTANYL-100 [Suspect]
     Route: 062
  3. LISINOPRIL [Suspect]
     Indication: HYPERTENSION
     Route: 048
  4. NEURONTIN [Concomitant]
     Indication: NEURALGIA
     Route: 048
  5. DYAZIDE [Concomitant]
     Indication: FLUID RETENTION
     Dosage: 37.5- 25 MG ONCE DAILY
     Route: 048
  6. EFFEXOR [Concomitant]
     Indication: DEPRESSION
     Route: 048
  7. ETODOLAC [Concomitant]
     Indication: ARTHRITIS
     Route: 048

REACTIONS (6)
  - COLITIS ULCERATIVE [None]
  - EUPHORIC MOOD [None]
  - INSOMNIA [None]
  - SOMNOLENCE [None]
  - SWOLLEN TONGUE [None]
  - WRONG TECHNIQUE IN DRUG USAGE PROCESS [None]
